FAERS Safety Report 26208362 (Version 1)
Quarter: 2025Q4

REPORT INFORMATION
  Report Type: Spontaneous
  Country: US (occurrence: US)
  Receive Date: 20251229
  Receipt Date: 20251229
  Transmission Date: 20260118
  Serious: No
  Sender: SANOFI AVENTIS
  Company Number: US-SA-2025SA382835

PATIENT
  Age: 41 Year
  Sex: Female

DRUGS (4)
  1. DUPIXENT [Suspect]
     Active Substance: DUPILUMAB
     Indication: Dermatitis atopic
     Dosage: 600 MG, 1X
     Route: 058
     Dates: start: 202509, end: 202509
  2. DUPIXENT [Suspect]
     Active Substance: DUPILUMAB
     Dosage: 300 MG, QOW
     Route: 058
     Dates: start: 2025
  3. MONTELUKAST [Concomitant]
     Active Substance: MONTELUKAST
     Dosage: UNK
  4. PREDNISONE [Concomitant]
     Active Substance: PREDNISONE
     Dosage: UNK
     Dates: end: 20251218

REACTIONS (7)
  - Eczema [Unknown]
  - Burning sensation [Unknown]
  - Paraesthesia [Unknown]
  - Pruritus [Unknown]
  - Insomnia [Unknown]
  - Arthralgia [Unknown]
  - Mood altered [Unknown]

NARRATIVE: CASE EVENT DATE: 20250901
